FAERS Safety Report 5796720-7 (Version None)
Quarter: 2008Q3

REPORT INFORMATION
  Report Type: 
  Country: None (occurrence: None)
  Receive Date: 20080701
  Receipt Date: 20080622
  Transmission Date: 20090109
  Serious: Yes (Death)
  Sender: FDA-Public Use
  Company Number: JP-MERCK-0806USA08665

PATIENT
  Age: 81 Year
  Sex: Female

DRUGS (5)
  1. PEPCID RPD [Concomitant]
     Indication: GASTRITIS
     Route: 048
     Dates: start: 20040422
  2. COZAAR [Suspect]
     Indication: HYPERTENSION
     Route: 048
  3. ONEALFA [Concomitant]
     Indication: OSTEOPOROSIS
     Route: 048
     Dates: start: 20070508
  4. WARFARIN POTASSIUM [Concomitant]
     Route: 048
     Dates: start: 20070508
  5. MYSLEE [Concomitant]
     Route: 048
     Dates: start: 20060829

REACTIONS (1)
  - DEATH [None]
